FAERS Safety Report 8785988 (Version 1)
Quarter: 2012Q4

REPORT INFORMATION
  Report Type: Report from Study
  Country: US (occurrence: US)
  Receive Date: 20120914
  Receipt Date: 20120914
  Transmission Date: 20130627
  Serious: No
  Sender: FDA-Public Use
  Company Number: US-VERTEX PHARMACEUTICAL INC.-AE-2012-011583

PATIENT
  Age: 66 Year
  Sex: Male

DRUGS (8)
  1. INCIVEK [Suspect]
     Indication: HEPATITIS C
     Route: 048
  2. PEGASYS [Concomitant]
     Indication: HEPATITIS C
  3. RIBAVIRIN [Concomitant]
     Indication: HEPATITIS C
  4. VIAGRA [Concomitant]
  5. ALBUTEROL NEB [Concomitant]
  6. ADVIL [Concomitant]
  7. SPIRIVA HANDIHLR [Concomitant]
  8. ASA LOW DOSE [Concomitant]

REACTIONS (1)
  - Drug ineffective [Unknown]
